FAERS Safety Report 7233877-5 (Version None)
Quarter: 2011Q1

REPORT INFORMATION
  Report Type: 
  Country: None (occurrence: None)
  Receive Date: 20110119
  Receipt Date: 20091215
  Transmission Date: 20110831
  Serious: Yes (Other)
  Sender: FDA-Public Use
  Company Number: US-TEVA-212784USA

PATIENT
  Sex: Female

DRUGS (3)
  1. COPAXONE [Suspect]
     Indication: MULTIPLE SCLEROSIS
     Route: 058
  2. GABAPENTIN [Concomitant]
  3. DIPHENHYDRAMINE HYDROCHLORIDE [Concomitant]

REACTIONS (1)
  - ANAPHYLACTIC REACTION [None]
